FAERS Safety Report 11790406 (Version 1)
Quarter: 2015Q4

REPORT INFORMATION
  Report Type: Report from Study
  Country: US (occurrence: US)
  Receive Date: 20151201
  Receipt Date: 20151201
  Transmission Date: 20160305
  Serious: Yes (Hospitalization)
  Sender: FDA-Public Use
  Company Number: US-IPCA LABORATORIES LIMITED-IPC201511-000795

PATIENT
  Age: 49 Year
  Sex: Female

DRUGS (17)
  1. LOMITAPIDE [Suspect]
     Active Substance: LOMITAPIDE MESYLATE
  2. LOMITAPIDE [Suspect]
     Active Substance: LOMITAPIDE MESYLATE
  3. ROSUVASTATIN CALCIUM. [Concomitant]
     Active Substance: ROSUVASTATIN CALCIUM
  4. ASPIRIN. [Concomitant]
     Active Substance: ASPIRIN
  5. FERROUS SULFATE [Concomitant]
     Active Substance: FERROUS SULFATE\FERROUS SULFATE, DRIED
  6. LOMITAPIDE [Suspect]
     Active Substance: LOMITAPIDE MESYLATE
  7. LOMITAPIDE [Suspect]
     Active Substance: LOMITAPIDE MESYLATE
  8. METOPROLOL TARTRATE. [Concomitant]
     Active Substance: METOPROLOL TARTRATE
  9. LOMITAPIDE [Suspect]
     Active Substance: LOMITAPIDE MESYLATE
  10. EZETIMIBE. [Concomitant]
     Active Substance: EZETIMIBE
  11. COLESEVELAM HYDROCHLORIDE [Concomitant]
     Active Substance: COLESEVELAM HYDROCHLORIDE
  12. ROBITUSSIN (GUAIFENESIN) [Concomitant]
     Active Substance: GUAIFENESIN
  13. WARFARIN [Suspect]
     Active Substance: WARFARIN
     Dosage: ADJUSTED ACCORDINGLY TO MAINTAIN THERAPEUTIC RANGE OF 2.5 TO 3.5
  14. LOMITAPIDE [Suspect]
     Active Substance: LOMITAPIDE MESYLATE
  15. VICKS NYQUIL [Concomitant]
     Active Substance: ACETAMINOPHEN\DEXTROMETHORPHAN HYDROBROMIDE\DOXYLAMINE SUCCINATE
  16. LOMITAPIDE [Suspect]
     Active Substance: LOMITAPIDE MESYLATE
  17. ACETAMINOPHEN. [Concomitant]
     Active Substance: ACETAMINOPHEN

REACTIONS (10)
  - Hypovolaemic shock [Unknown]
  - Myocardial infarction [Unknown]
  - Drug interaction [Unknown]
  - Cerebrovascular accident [Unknown]
  - International normalised ratio increased [Recovered/Resolved]
  - Cardiac failure congestive [Unknown]
  - Subdural haematoma [Recovered/Resolved]
  - Toxicity to various agents [Unknown]
  - Haemorrhage [Recovered/Resolved]
  - Menorrhagia [Unknown]
